FAERS Safety Report 25396913 (Version 1)
Quarter: 2025Q2

REPORT INFORMATION
  Report Type: Spontaneous
  Country: FR (occurrence: FR)
  Receive Date: 20250604
  Receipt Date: 20250604
  Transmission Date: 20250716
  Serious: Yes (Other)
  Sender: MYLAN
  Company Number: None

PATIENT
  Age: 47 Year
  Sex: Female

DRUGS (12)
  1. TRAMADOL [Suspect]
     Active Substance: TRAMADOL
     Indication: Product used for unknown indication
  2. TRAMADOL [Suspect]
     Active Substance: TRAMADOL
     Route: 065
  3. TRAMADOL [Suspect]
     Active Substance: TRAMADOL
     Route: 065
  4. TRAMADOL [Suspect]
     Active Substance: TRAMADOL
  5. ACETAMINOPHEN\OPIUM [Suspect]
     Active Substance: ACETAMINOPHEN\OPIUM
     Indication: Product used for unknown indication
  6. ACETAMINOPHEN\OPIUM [Suspect]
     Active Substance: ACETAMINOPHEN\OPIUM
     Route: 065
  7. ACETAMINOPHEN\OPIUM [Suspect]
     Active Substance: ACETAMINOPHEN\OPIUM
     Route: 065
  8. ACETAMINOPHEN\OPIUM [Suspect]
     Active Substance: ACETAMINOPHEN\OPIUM
  9. CODEINE [Suspect]
     Active Substance: CODEINE
     Indication: Product used for unknown indication
  10. CODEINE [Suspect]
     Active Substance: CODEINE
     Route: 065
  11. CODEINE [Suspect]
     Active Substance: CODEINE
     Route: 065
  12. CODEINE [Suspect]
     Active Substance: CODEINE

REACTIONS (2)
  - Drug dependence [Recovering/Resolving]
  - Drug withdrawal maintenance therapy [Recovering/Resolving]

NARRATIVE: CASE EVENT DATE: 20150101
